FAERS Safety Report 4436238-7 (Version None)
Quarter: 2004Q3

REPORT INFORMATION
  Report Type: 
  Country: None (occurrence: None)
  Receive Date: 20040830
  Receipt Date: 20040604
  Transmission Date: 20050211
  Serious: No
  Sender: FDA-Public Use
  Company Number: US-BRISTOL-MYERS SQUIBB COMPANY-12607222

PATIENT
  Age: 71 Year
  Sex: Female

DRUGS (6)
  1. ERBITUX [Suspect]
     Indication: COLORECTAL CANCER METASTATIC
     Route: 042
     Dates: start: 20040427, end: 20040427
  2. BENADRYL [Concomitant]
     Route: 042
     Dates: start: 20040504, end: 20030304
  3. DECADRON [Concomitant]
     Route: 042
     Dates: start: 20040504, end: 20040504
  4. ZOFRAN [Concomitant]
     Route: 042
     Dates: start: 20040504, end: 20040504
  5. ROWASA [Concomitant]
     Indication: COLITIS
  6. ASACOL [Concomitant]
     Indication: COLITIS

REACTIONS (1)
  - RECTAL HAEMORRHAGE [None]
